FAERS Safety Report 6646584-4 (Version None)
Quarter: 2010Q1

REPORT INFORMATION
  Report Type: 
  Country: None (occurrence: None)
  Receive Date: 20100322
  Receipt Date: 20100322
  Transmission Date: 20100710
  Serious: Yes (Other)
  Sender: FDA-Public Use
  Company Number: None

PATIENT
  Sex: Female
  Weight: 74.8435 kg

DRUGS (1)
  1. TYLENOL REGULAR STRENGTH - 325 MG EACH MCNEIL - PPC, INC. [Suspect]
     Indication: SINUSITIS
     Dosage: 2 TABLETS EVERY 4 TO 6 HOURS 047 - ORALLY
     Route: 048
     Dates: start: 20091224, end: 20100107

REACTIONS (4)
  - ABORTION SPONTANEOUS [None]
  - DRUG EXPOSURE DURING PREGNANCY [None]
  - PREGNANCY [None]
  - PRODUCT QUALITY ISSUE [None]
